FAERS Safety Report 16238138 (Version 4)
Quarter: 2019Q3

REPORT INFORMATION
  Report Type: Spontaneous
  Country: JP (occurrence: JP)
  Receive Date: 20190425
  Receipt Date: 20190911
  Transmission Date: 20191004
  Serious: Yes (Hospitalization, Other)
  Sender: FDA-Public Use
  Company Number: JP-ELI_LILLY_AND_COMPANY-JP201904012161

PATIENT
  Age: 85 Year
  Sex: Female

DRUGS (6)
  1. VERZENIO [Suspect]
     Active Substance: ABEMACICLIB
     Indication: BREAST CANCER
     Dosage: 150 MG, BID
     Route: 048
     Dates: start: 20181208, end: 20190215
  2. VERZENIO [Suspect]
     Active Substance: ABEMACICLIB
     Dosage: 250 MG, 150MG AND 100MG
     Dates: start: 20190315, end: 20190412
  3. VERZENIO [Suspect]
     Active Substance: ABEMACICLIB
     Dosage: 100 MG, BID
     Route: 048
     Dates: start: 20190216, end: 20190314
  4. VERZENIO [Suspect]
     Active Substance: ABEMACICLIB
     Dosage: 150 MG, BID
     Dates: start: 20190413, end: 20190422
  5. CLONAZEPAM. [Concomitant]
     Active Substance: CLONAZEPAM
  6. FASLODEX [Suspect]
     Active Substance: FULVESTRANT
     Indication: BREAST CANCER
     Dosage: 500 MG
     Route: 030
     Dates: start: 20181208, end: 201904

REACTIONS (5)
  - Aspartate aminotransferase increased [Unknown]
  - Interstitial lung disease [Recovering/Resolving]
  - Alanine aminotransferase increased [Unknown]
  - Malignant neoplasm progression [Unknown]
  - Urticaria [Unknown]

NARRATIVE: CASE EVENT DATE: 20190216
